FAERS Safety Report 14313551 (Version 2)
Quarter: 2018Q1

REPORT INFORMATION
  Report Type: Report from Study
  Country: ES (occurrence: ES)
  Receive Date: 20171221
  Receipt Date: 20180305
  Transmission Date: 20180509
  Serious: Yes (Other)
  Sender: FDA-Public Use
  Company Number: ES-PFIZER INC-2017537491

PATIENT
  Age: 4 Year
  Sex: Male

DRUGS (10)
  1. FLUCONAZOL [Concomitant]
     Active Substance: FLUCONAZOLE
     Indication: OPPORTUNISTIC INFECTION PROPHYLAXIS
     Dosage: 100 MG, 1X/DAY
     Route: 048
     Dates: start: 20170523, end: 20170710
  2. CITARABINA [Suspect]
     Active Substance: CYTARABINE
     Indication: ACUTE LYMPHOCYTIC LEUKAEMIA
     Dosage: 440 MG; NUMBER OF UNITS IN THE INTERVAL: 11; DEFINITION OF THE TIME INTERVAL UNIT: DAY
     Route: 042
     Dates: start: 20170707, end: 20170717
  3. SEPTRIN PAEDIATRIC [Concomitant]
     Indication: OPPORTUNISTIC INFECTION PROPHYLAXIS
     Dosage: 10 ML, 1X/DAY; 8 MG/40 MG/ML;
     Route: 048
     Dates: start: 20170523
  4. ZOVIRAX [Concomitant]
     Active Substance: ACYCLOVIR
     Indication: OPPORTUNISTIC INFECTION PROPHYLAXIS
     Dosage: 6.6 ML, 1X/DAY; 400 MG/5 ML
     Route: 048
     Dates: start: 20170523
  5. MERCAPTOPURINE. [Suspect]
     Active Substance: MERCAPTOPURINE
     Indication: ACUTE LYMPHOCYTIC LEUKAEMIA
     Dosage: 40 MG, 1X/DAY
     Route: 048
     Dates: start: 20170706, end: 20170721
  6. VANCOMICINA [Concomitant]
     Active Substance: VANCOMYCIN
     Indication: CATHETER SITE INFECTION
     Dosage: 680 MG, 1X/DAY
     Route: 042
     Dates: start: 20170626, end: 20170706
  7. AMFOTERICINA B [Concomitant]
     Indication: OPPORTUNISTIC INFECTION PROPHYLAXIS
     Dosage: 24 MG, WEEKLY
     Route: 045
     Dates: start: 20170523, end: 20170710
  8. CYCLOPHOSPHAMIDE. [Suspect]
     Active Substance: CYCLOPHOSPHAMIDE
     Indication: ACUTE LYMPHOCYTIC LEUKAEMIA
     Dosage: 730 MG, 1X/DAY
     Route: 042
     Dates: start: 20170705, end: 20170705
  9. DAPTOMICINA [Concomitant]
     Active Substance: DAPTOMYCIN
     Indication: DEVICE RELATED INFECTION
     Dosage: 25 MG, ALTERNATE DAY
     Route: 042
     Dates: start: 20170704, end: 20170718
  10. MESNA. [Concomitant]
     Active Substance: MESNA
     Indication: PROPHYLAXIS
     Dosage: 825 MG, 1X/DAY
     Route: 042
     Dates: start: 20170705, end: 20170705

REACTIONS (3)
  - Anaemia [Recovered/Resolved]
  - Thrombocytopenia [Recovered/Resolved]
  - Petechiae [Recovered/Resolved]

NARRATIVE: CASE EVENT DATE: 20170717
